FAERS Safety Report 13302000 (Version 2)
Quarter: 2017Q1

REPORT INFORMATION
  Report Type: Spontaneous
  Country: GB (occurrence: GB)
  Receive Date: 20170307
  Receipt Date: 20170324
  Transmission Date: 20170428
  Serious: Yes (Other)
  Sender: FDA-Public Use
  Company Number: GB-TEVA-744606ACC

PATIENT
  Age: 72 Year
  Sex: Male

DRUGS (7)
  1. DIFFUNDOX XL [Suspect]
     Active Substance: TAMSULOSIN HYDROCHLORIDE
     Indication: PAIN
     Route: 065
     Dates: start: 20150909
  2. DIFFUNDOX XL [Suspect]
     Active Substance: TAMSULOSIN HYDROCHLORIDE
     Route: 065
     Dates: start: 20151005
  3. OMEPRAZOLE. [Suspect]
     Active Substance: OMEPRAZOLE
     Dosage: 10 MILLIGRAM DAILY;
     Route: 065
  4. GINKGO BILOBA [Concomitant]
     Active Substance: GINKGO
     Route: 065
  5. GLUCOSAMINE [Concomitant]
     Active Substance: GLUCOSAMINE
     Route: 065
  6. NUTRITIONAL SUPPLEMENT [Concomitant]
     Active Substance: DIETARY SUPPLEMENT
  7. GINSENG [Concomitant]
     Active Substance: ASIAN GINSENG

REACTIONS (5)
  - Macular hole [Unknown]
  - Eosinophilia [Unknown]
  - Macular detachment [Unknown]
  - Macular degeneration [Unknown]
  - Vision blurred [Unknown]

NARRATIVE: CASE EVENT DATE: 20151014
